FAERS Safety Report 13913944 (Version 1)
Quarter: 2017Q3

REPORT INFORMATION
  Report Type: Spontaneous
  Country: US (occurrence: US)
  Receive Date: 20170828
  Receipt Date: 20170828
  Transmission Date: 20171127
  Serious: No
  Sender: FDA-Public Use
  Company Number: US-ROCHE-1140184

PATIENT
  Age: 11 Year
  Sex: Female

DRUGS (7)
  1. NUTROPIN AQ [Suspect]
     Active Substance: SOMATROPIN
     Indication: GROWTH HORMONE DEFICIENCY
     Dosage: 0.33 CC
     Route: 058
     Dates: start: 19991101
  2. TACROLIMUS. [Concomitant]
     Active Substance: TACROLIMUS
  3. RITALIN [Concomitant]
     Active Substance: METHYLPHENIDATE HYDROCHLORIDE
     Route: 065
  4. PREDNISONE. [Concomitant]
     Active Substance: PREDNISONE
     Route: 065
  5. NUTROPIN AQ [Suspect]
     Active Substance: SOMATROPIN
     Route: 058
  6. FERROUS SULFATE. [Concomitant]
     Active Substance: FERROUS SULFATE
  7. IRON [Concomitant]
     Active Substance: IRON
     Route: 065

REACTIONS (9)
  - Injection site pain [Unknown]
  - Headache [Unknown]
  - Abdominal pain [Unknown]
  - Skin papilloma [Unknown]
  - Pyrexia [Unknown]
  - Chills [Unknown]
  - Decreased appetite [Unknown]
  - Hyperventilation [Unknown]
  - Vomiting [Unknown]

NARRATIVE: CASE EVENT DATE: 200002
